FAERS Safety Report 8308977-9 (Version None)
Quarter: 2012Q2

REPORT INFORMATION
  Report Type: 
  Country: None (occurrence: None)
  Receive Date: 20120424
  Receipt Date: 20120417
  Transmission Date: 20120825
  Serious: Yes (Hospitalization)
  Sender: FDA-Public Use
  Company Number: US-TEVA-333182USA

PATIENT
  Sex: Female

DRUGS (3)
  1. TAMOXIFEN CITRATE [Concomitant]
  2. ANASTROZOLE [Suspect]
  3. METOCLOPRAMIDE [Suspect]

REACTIONS (6)
  - HEADACHE [None]
  - VOMITING [None]
  - DRUG INEFFECTIVE [None]
  - CHILLS [None]
  - TREMOR [None]
  - CHEST PAIN [None]
